FAERS Safety Report 8831113 (Version 1)
Quarter: 2012Q4

REPORT INFORMATION
  Report Type: 
  Country: US (occurrence: US)
  Receive Date: 20121009
  Receipt Date: 20121009
  Transmission Date: 20130627
  Serious: Yes (Other)
  Sender: FDA-Public Use
  Company Number: PHEH2012US019279

PATIENT
  Sex: Male

DRUGS (1)
  1. GLEEVEC [Suspect]
     Indication: HEPATIC NEOPLASM

REACTIONS (5)
  - Suicidal ideation [Unknown]
  - Pain [Unknown]
  - Stress [Unknown]
  - Insomnia [Unknown]
  - Depression [Unknown]
